FAERS Safety Report 18659696 (Version 1)
Quarter: 2020Q4

REPORT INFORMATION
  Report Type: Spontaneous
  Country: US (occurrence: US)
  Receive Date: 20201223
  Receipt Date: 20201223
  Transmission Date: 20210114
  Serious: No
  Sender: FDA-Public Use
  Company Number: US-BAUSCH-BL-2020-035487

PATIENT
  Age: 70 Year
  Sex: Female

DRUGS (1)
  1. APLENZIN [Suspect]
     Active Substance: BUPROPION HYDROBROMIDE
     Indication: PRODUCT USED FOR UNKNOWN INDICATION
     Route: 065

REACTIONS (1)
  - Alopecia [Unknown]
